FAERS Safety Report 7172312-2 (Version None)
Quarter: 2010Q4

REPORT INFORMATION
  Report Type: 
  Country: None (occurrence: None)
  Receive Date: 20101217
  Receipt Date: 20100206
  Transmission Date: 20110411
  Serious: No
  Sender: FDA-Public Use
  Company Number: US-AMGEN-KDL391324

PATIENT

DRUGS (9)
  1. ENBREL [Suspect]
     Indication: RHEUMATOID ARTHRITIS
     Dosage: 50 MG, QWK
     Route: 058
     Dates: start: 20090205
  2. METHOTREXATE [Concomitant]
     Dosage: 2.5 MG, QWK
     Dates: start: 20080826
  3. FISH OIL [Concomitant]
     Dosage: 1000 MG, QD
     Dates: start: 20081201
  4. FLAX SEED OIL [Concomitant]
     Dosage: UNK UNK, UNK
     Dates: start: 20081201
  5. FOLIC ACID [Concomitant]
     Dosage: 1 MG, QD
     Dates: start: 20080826
  6. MULTI-VITAMINS [Concomitant]
     Dosage: UNK UNK, QD
     Dates: start: 20081201
  7. OMEPRAZOLE [Concomitant]
     Dosage: 12 MG, Q12H
     Dates: start: 20090105
  8. CYCLOSPORINE OPHTHALMIC EMULSION [Concomitant]
     Dosage: UNK UNK, BID
     Dates: start: 20090105
  9. TRAMADOL HCL [Concomitant]
     Dosage: 50 MG, PRN
     Dates: start: 20080926

REACTIONS (3)
  - CARPAL TUNNEL SYNDROME [None]
  - EXOSTOSIS [None]
  - TENDON DISORDER [None]
